FAERS Safety Report 5088839-3 (Version None)
Quarter: 2006Q3

REPORT INFORMATION
  Report Type: 
  Country: None (occurrence: None)
  Receive Date: 20060824
  Receipt Date: 20060824
  Transmission Date: 20061208
  Serious: Yes (Hospitalization, Other)
  Sender: FDA-Public Use
  Company Number: None

PATIENT
  Age: 51 Year
  Sex: Female
  Weight: 58 kg

DRUGS (2)
  1. PROPOFOL [Suspect]
     Indication: COLONOSCOPY
     Dates: start: 20060806
  2. VENLAFAXINE HCL [Suspect]
     Indication: DEPRESSION
     Dosage: 150 MG DAILY PO
     Route: 048

REACTIONS (5)
  - ASTHENOPIA [None]
  - CONVULSION [None]
  - DELAYED RECOVERY FROM ANAESTHESIA [None]
  - ENZYME ABNORMALITY [None]
  - SENSATION OF HEAVINESS [None]
